FAERS Safety Report 7588536-6 (Version None)
Quarter: 2011Q3

REPORT INFORMATION
  Report Type: 
  Country: None (occurrence: None)
  Receive Date: 20110705
  Receipt Date: 20110616
  Transmission Date: 20111222
  Serious: No
  Sender: FDA-Public Use
  Company Number: US-B.I. PHARMACEUTICALS,INC./RIDGEFIELD-2011-BP-15686BP

PATIENT
  Sex: Male

DRUGS (10)
  1. FENTANYL [Concomitant]
     Indication: FIBROMYALGIA
     Dates: start: 20000101
  2. SYNTHROID [Concomitant]
     Indication: HYPOTHYROIDISM
     Dosage: 225 MG
     Route: 048
     Dates: start: 20030101
  3. ZYRTEC [Concomitant]
     Indication: ASTHMA
     Dosage: 10 MG
     Route: 048
     Dates: start: 20000101
  4. VICODIN [Concomitant]
     Indication: FIBROMYALGIA
     Route: 048
     Dates: start: 20000101
  5. KETOCONAZOLE [Concomitant]
     Indication: FIBROMYALGIA
     Dosage: 200 MG
     Route: 048
     Dates: start: 20000101, end: 20110612
  6. CARDIZEM [Concomitant]
     Indication: HYPERTENSION
     Dosage: 120 MG
     Route: 048
     Dates: start: 19600101
  7. PRADAXA [Suspect]
     Indication: ATRIAL FIBRILLATION
     Dosage: 300 MG
     Route: 048
     Dates: start: 20110330
  8. VITAMIN B-12 [Concomitant]
     Indication: BLOOD HOMOCYSTEINE INCREASED
     Route: 048
     Dates: start: 20000101
  9. PERCOCET [Concomitant]
     Indication: FIBROMYALGIA
     Route: 048
     Dates: start: 20000101
  10. BENICAR [Concomitant]
     Indication: HYPERTENSION
     Dosage: 20 MG
     Route: 048
     Dates: start: 19600101

REACTIONS (1)
  - HEADACHE [None]
